FAERS Safety Report 8298589-8 (Version None)
Quarter: 2012Q2

REPORT INFORMATION
  Report Type: 
  Country: None (occurrence: None)
  Receive Date: 20120419
  Receipt Date: 20120413
  Transmission Date: 20120825
  Serious: No
  Sender: FDA-Public Use
  Company Number: US-B.I. PHARMACEUTICALS,INC./RIDGEFIELD-2012-BP-07034BP

PATIENT
  Sex: Female

DRUGS (2)
  1. ZANTAC [Suspect]
     Indication: FLATULENCE
  2. ZANTAC [Suspect]
     Indication: ABDOMINAL DISTENSION
     Route: 048
     Dates: start: 20120101, end: 20120101

REACTIONS (1)
  - DRUG INEFFECTIVE [None]
